FAERS Safety Report 22948930 (Version 2)
Quarter: 2023Q4

REPORT INFORMATION
  Report Type: Report from Study
  Country: NL (occurrence: NL)
  Receive Date: 20230915
  Receipt Date: 20231020
  Transmission Date: 20240110
  Serious: Yes (Hospitalization, Other)
  Sender: FDA-Public Use
  Company Number: NL-JNJFOC-20230104722

PATIENT
  Age: 67 Year
  Sex: Male
  Weight: 107 kg

DRUGS (32)
  1. BORTEZOMIB [Suspect]
     Active Substance: BORTEZOMIB
     Indication: Plasma cell myeloma refractory
     Dosage: 1.2 MILLILITER
     Route: 058
     Dates: start: 20220830, end: 20230127
  2. DEXAMETHASONE [Suspect]
     Active Substance: DEXAMETHASONE
     Indication: Plasma cell myeloma refractory
     Dosage: 20 MILLIGRAM
     Route: 048
     Dates: start: 20220830, end: 20230128
  3. DARATUMUMAB [Suspect]
     Active Substance: DARATUMUMAB
     Indication: Plasma cell myeloma refractory
     Dosage: 15 MILLILITER
     Route: 058
     Dates: start: 20220830, end: 20230117
  4. PREGABALIN [Concomitant]
     Active Substance: PREGABALIN
     Indication: Neuropathy peripheral
     Dosage: 75 MILLIGRAM, BID
     Route: 048
     Dates: start: 20201021, end: 20230424
  5. DAPSONE [Concomitant]
     Active Substance: DAPSONE
     Indication: Antibiotic prophylaxis
     Dosage: UNK
     Route: 048
     Dates: start: 20220830
  6. DAPSONE [Concomitant]
     Active Substance: DAPSONE
     Dosage: 100 MILLIGRAM
     Route: 048
     Dates: start: 20230201, end: 20230202
  7. METFORMIN [Concomitant]
     Active Substance: METFORMIN HYDROCHLORIDE
     Indication: Hyperglycaemia
     Dosage: 500 MILLIGRAM, BID
     Route: 048
     Dates: start: 20220830
  8. VALACYCLOVIR HYDROCHLORIDE [Concomitant]
     Active Substance: VALACYCLOVIR HYDROCHLORIDE
     Indication: Antibiotic prophylaxis
     Dosage: 500 MILLIGRAM
     Route: 048
     Dates: start: 20220830
  9. METOCLOPRAMIDE [Concomitant]
     Active Substance: METOCLOPRAMIDE
     Indication: Prophylaxis of nausea and vomiting
     Dosage: 10 MILLIGRAM
     Route: 048
     Dates: start: 20220830
  10. ERYTHROPOIETIN [Concomitant]
     Active Substance: ERYTHROPOIETIN
     Indication: Anaemia
     Dosage: 360 MICROGRAM, Q4WEEKS
     Route: 065
     Dates: start: 20220920
  11. ERYTHROPOIETIN [Concomitant]
     Active Substance: ERYTHROPOIETIN
     Indication: Anaemia
     Dosage: UNK UNK, Q4WEEKS
     Route: 065
  12. ERYTHROPOIETIN [Concomitant]
     Active Substance: ERYTHROPOIETIN
     Dosage: UNK UNK, Q4WEEKS
     Route: 065
  13. FORMOTEROL [Concomitant]
     Active Substance: FORMOTEROL
     Indication: Chronic obstructive pulmonary disease
     Dosage: 1 DOSAGE FORM, QD
     Route: 055
     Dates: start: 20221004
  14. NORFLOXACIN [Concomitant]
     Active Substance: NORFLOXACIN
     Indication: Unevaluable event
     Dosage: 400 MILLIGRAM, BID
     Route: 048
     Dates: start: 20221024
  15. MAGNESIUM CITRATE [Concomitant]
     Active Substance: MAGNESIUM CITRATE
     Indication: Prophylaxis
     Dosage: 376 MILLIGRAM, QD
     Route: 048
  16. MAGNESIUM CITRATE [Concomitant]
     Active Substance: MAGNESIUM CITRATE
     Indication: Musculoskeletal stiffness
     Dosage: 376 MILLIGRAM, QD
     Route: 048
  17. CALCIUM CARBONATE [Concomitant]
     Active Substance: CALCIUM CARBONATE
     Indication: Prophylaxis
     Dosage: UNK UNK, QD
     Route: 048
  18. CALCIUM CARBONATE [Concomitant]
     Active Substance: CALCIUM CARBONATE
     Dosage: 500 MILLIGRAM, QD
     Route: 048
  19. HERBALS\PLANTAGO OVATA LEAF [Concomitant]
     Active Substance: HERBALS\PLANTAGO OVATA LEAF
     Indication: Constipation prophylaxis
     Dosage: 3.6 GRAM
     Route: 048
  20. HERBALS\PLANTAGO OVATA LEAF [Concomitant]
     Active Substance: HERBALS\PLANTAGO OVATA LEAF
     Dosage: 3.6 GRAM
     Route: 048
  21. TAMSULOSIN [Concomitant]
     Active Substance: TAMSULOSIN
     Indication: Prostate cancer
     Dosage: 0.4 MILLIGRAM, QD
     Route: 048
  22. METOPROLOL [Concomitant]
     Active Substance: METOPROLOL
     Indication: Atrial fibrillation
     Dosage: 50 MILLIGRAM, QD
     Route: 048
     Dates: end: 20230201
  23. CITALOPRAM [Concomitant]
     Active Substance: CITALOPRAM HYDROBROMIDE
     Indication: Anxiety disorder
     Dosage: 40 MILLIGRAM
     Route: 048
  24. APIXABAN [Concomitant]
     Active Substance: APIXABAN
     Indication: Atrial fibrillation
     Dosage: 5 MILLIGRAM
     Route: 048
     Dates: start: 20230131, end: 20230202
  25. APIXABAN [Concomitant]
     Active Substance: APIXABAN
     Indication: Thrombosis prophylaxis
     Dosage: 5 MILLIGRAM
     Route: 048
  26. OMEPRAZOLE [Concomitant]
     Active Substance: OMEPRAZOLE
     Indication: Prophylaxis
     Dosage: 20 MILLIGRAM, QD
     Route: 048
  27. NANOGRAM [Concomitant]
     Indication: Infection prophylaxis
     Dosage: UNK
     Route: 042
     Dates: start: 20221216, end: 20221216
  28. NANOGRAM [Concomitant]
     Dosage: 42500 MILLIGRAM
     Route: 042
     Dates: start: 20230117, end: 20230117
  29. NANOGRAM [Concomitant]
     Dosage: UNK
     Route: 042
     Dates: start: 20230228, end: 20230228
  30. PANTOPRAZOLE [Concomitant]
     Active Substance: PANTOPRAZOLE
     Indication: Prophylaxis
     Dosage: UNK
     Route: 048
     Dates: start: 20230104, end: 20230108
  31. PANTOPRAZOLE [Concomitant]
     Active Substance: PANTOPRAZOLE
     Dosage: 20 MILLIGRAM
     Route: 048
     Dates: start: 20230201, end: 20230202
  32. NITROFURANTOIN [Concomitant]
     Active Substance: NITROFURANTOIN
     Indication: Urinary tract infection
     Dosage: UNK
     Route: 048
     Dates: start: 20230501, end: 20230502

REACTIONS (2)
  - Metapneumovirus pneumonia [Recovered/Resolved]
  - Syncope [Recovered/Resolved]

NARRATIVE: CASE EVENT DATE: 20230102
